FAERS Safety Report 9868543 (Version 1)
Quarter: 2014Q1

REPORT INFORMATION
  Report Type: Spontaneous
  Country: IT (occurrence: IT)
  Receive Date: 20140204
  Receipt Date: 20140204
  Transmission Date: 20141002
  Serious: Yes (Death)
  Sender: FDA-Public Use
  Company Number: IT-PFIZER INC-2014029572

PATIENT
  Age: 83 Year
  Sex: Female

DRUGS (4)
  1. PIPERACILLIN/TAZOBACTAM [Suspect]
     Dosage: UNK
  2. LEVOFLOXACIN [Suspect]
     Dosage: UNK
  3. PREDNISONE [Suspect]
     Dosage: UNK
  4. WARFARIN [Concomitant]
     Indication: ATRIAL FLUTTER

REACTIONS (2)
  - Drug ineffective [Fatal]
  - Hypercapnic coma [Fatal]
